FAERS Safety Report 7544211-5 (Version None)
Quarter: 2011Q2

REPORT INFORMATION
  Report Type: 
  Country: None (occurrence: None)
  Receive Date: 20110613
  Receipt Date: 20060629
  Transmission Date: 20111010
  Serious: Yes (Death, Hospitalization)
  Sender: FDA-Public Use
  Company Number: PHHO2005JP19891

PATIENT
  Sex: Female

DRUGS (1)
  1. DIOVAN [Suspect]
     Indication: HYPERTENSION
     Dosage: 80 MG QD
     Route: 048
     Dates: start: 20021119

REACTIONS (6)
  - INSOMNIA [None]
  - CONDITION AGGRAVATED [None]
  - GASTRIC ULCER [None]
  - MULTIPLE MYELOMA [None]
  - RENAL FAILURE [None]
  - CONSTIPATION [None]
